FAERS Safety Report 9016354 (Version 2)
Quarter: 2013Q1

REPORT INFORMATION
  Report Type: Report from Study
  Country: DE (occurrence: DE)
  Receive Date: 20130116
  Receipt Date: 20130304
  Transmission Date: 20140127
  Serious: Yes (Other)
  Sender: FDA-Public Use
  Company Number: DE-ABBOTT-13P-062-1035102-00

PATIENT
  Age: 41 Year
  Sex: Male

DRUGS (2)
  1. KALETRA [Suspect]
     Indication: HIV INFECTION
     Dosage: 200/50 MILLIGRAM; 2-0-2
     Dates: start: 20101209
  2. RAL [Concomitant]
     Indication: PRODUCT USED FOR UNKNOWN INDICATION

REACTIONS (13)
  - Syphilis [Unknown]
  - Diarrhoea [Unknown]
  - Diarrhoea [Unknown]
  - Blood triglycerides abnormal [Unknown]
  - Blood triglycerides abnormal [Unknown]
  - Blood triglycerides abnormal [Unknown]
  - Blood triglycerides abnormal [Unknown]
  - Blood cholesterol abnormal [Unknown]
  - Blood cholesterol abnormal [Unknown]
  - Blood cholesterol abnormal [Unknown]
  - Blood cholesterol abnormal [Unknown]
  - Emotional disorder [Unknown]
  - Low density lipoprotein abnormal [Unknown]
